FAERS Safety Report 24870737 (Version 1)
Quarter: 2025Q1

REPORT INFORMATION
  Report Type: Spontaneous
  Country: US (occurrence: US)
  Receive Date: 20250121
  Receipt Date: 20250121
  Transmission Date: 20250409
  Serious: No
  Sender: ELI LILLY AND COMPANY
  Company Number: US-ELI_LILLY_AND_COMPANY-US202501001478

PATIENT
  Age: 79 Year
  Sex: Female

DRUGS (1)
  1. EMGALITY [Suspect]
     Active Substance: GALCANEZUMAB-GNLM
     Indication: Product used for unknown indication
     Route: 065

REACTIONS (7)
  - Product dose omission issue [Unknown]
  - Wrong technique in device usage process [Unknown]
  - Injury associated with device [Unknown]
  - Hypoaesthesia [Unknown]
  - Product administered at inappropriate site [Unknown]
  - Headache [Unknown]
  - Injection site discolouration [Unknown]
